FAERS Safety Report 19066356 (Version 2)
Quarter: 2021Q2

REPORT INFORMATION
  Report Type: Spontaneous
  Country: US (occurrence: US)
  Receive Date: 20210328
  Receipt Date: 20210423
  Transmission Date: 20210717
  Serious: Yes (Disabling)
  Sender: FDA-Public Use
  Company Number: US-TEVA-2021-US-1893627

PATIENT
  Age: 70 Year
  Sex: Female
  Weight: 87 kg

DRUGS (2)
  1. CYCLOPHOSPHAMIDE. [Concomitant]
     Active Substance: CYCLOPHOSPHAMIDE
     Indication: BREAST CANCER FEMALE
     Dosage: NUMBER OF CYCLE ? 06, FREQUENCY ? EVERY THREE WEEKS
     Dates: start: 20160511, end: 20160831
  2. DOCETAXEL INJECTION [Suspect]
     Active Substance: DOCETAXEL
     Indication: BREAST CANCER FEMALE
     Dosage: DOSAGE 60MG, NUMBER OF CYCLE ? 06, FREQUENCY ? EVERY THREE WEEKS
     Dates: start: 20160511, end: 20160831

REACTIONS (4)
  - Madarosis [Not Recovered/Not Resolved]
  - Hair texture abnormal [Not Recovered/Not Resolved]
  - Hair colour changes [Not Recovered/Not Resolved]
  - Alopecia areata [Not Recovered/Not Resolved]

NARRATIVE: CASE EVENT DATE: 201702
